FAERS Safety Report 4300425-9 (Version None)
Quarter: 2004Q1

REPORT INFORMATION
  Report Type: 
  Country: None (occurrence: None)
  Receive Date: 20040218
  Receipt Date: 20040218
  Transmission Date: 20041129
  Serious: Yes (Hospitalization)
  Sender: FDA-Public Use
  Company Number: None

PATIENT
  Age: 55 Year
  Sex: Male
  Weight: 83 kg

DRUGS (7)
  1. LITHIUM 300 MG [Suspect]
     Indication: BIPOLAR DISORDER
     Dosage: 2 PO TID
     Route: 048
  2. AUGMENTIN [Concomitant]
  3. CELECOXIB [Concomitant]
  4. WARFARIN SODIUM [Concomitant]
  5. METOPROLOL [Concomitant]
  6. TAMAZEPAM [Concomitant]
  7. BUPROPION HCL [Concomitant]

REACTIONS (11)
  - ABNORMAL BEHAVIOUR [None]
  - AGGRESSION [None]
  - ANXIETY [None]
  - ASTHENIA [None]
  - COUGH [None]
  - DRUG TOXICITY [None]
  - LETHARGY [None]
  - MENTAL STATUS CHANGES [None]
  - NAUSEA [None]
  - TREMOR [None]
  - VOMITING [None]
